FAERS Safety Report 4380775-0 (Version None)
Quarter: 2004Q2

REPORT INFORMATION
  Report Type: 
  Country: None (occurrence: None)
  Receive Date: 20040616
  Receipt Date: 20040601
  Transmission Date: 20050107
  Serious: Yes (Death)
  Sender: FDA-Public Use
  Company Number: GBS040514883

PATIENT
  Age: 62 Year
  Sex: Male
  Weight: 90 kg

DRUGS (11)
  1. XIGRIS [Suspect]
     Indication: PULMONARY SEPSIS
     Dates: start: 20040410, end: 20040414
  2. CLARITHROMYCIN [Concomitant]
  3. CEFTRIAXONE [Concomitant]
  4. MINIHEP (HEPARIN SODIUM) [Concomitant]
  5. RANITIDINE [Concomitant]
  6. COMBIVENT [Concomitant]
  7. HYDROCORTISONE [Concomitant]
  8. DIGOXIN [Concomitant]
  9. INSULIN [Concomitant]
  10. .. [Concomitant]
  11. .. [Concomitant]

REACTIONS (5)
  - AORTIC DISSECTION [None]
  - CARDIO-RESPIRATORY ARREST [None]
  - ELECTROMECHANICAL DISSOCIATION [None]
  - GENERAL PHYSICAL HEALTH DETERIORATION [None]
  - PERICARDIAL HAEMORRHAGE [None]
